FAERS Safety Report 20085675 (Version 1)
Quarter: 2021Q4

REPORT INFORMATION
  Report Type: Spontaneous
  Country: US (occurrence: US)
  Receive Date: 20211118
  Receipt Date: 20211118
  Transmission Date: 20220303
  Serious: Yes (Other)
  Sender: FDA-Public Use
  Company Number: US-GLAXOSMITHKLINE-US2021AMR234823

PATIENT
  Age: 72 Year
  Sex: Female

DRUGS (2)
  1. JEMPERLI [Suspect]
     Active Substance: DOSTARLIMAB-GXLY
     Indication: Endometrial adenocarcinoma
     Dosage: 500 MG (IV 30 MIN INFUSION Q3 WEEKS X4 DOSES)
     Route: 042
  2. JEMPERLI [Suspect]
     Active Substance: DOSTARLIMAB-GXLY
     Dosage: 1000 MG (THEN 1000MG Q6W UNTIL PROGRESSION OR INTOLERANCE)
     Route: 042

REACTIONS (1)
  - Hypothyroidism [Unknown]
